FAERS Safety Report 8869511 (Version 5)
Quarter: 2017Q1

REPORT INFORMATION
  Report Type: Spontaneous
  Country: US (occurrence: US)
  Receive Date: 20121028
  Receipt Date: 20170208
  Transmission Date: 20170429
  Serious: Yes (Death, Hospitalization, Disabling, Other)
  Sender: FDA-Public Use
  Company Number: US-009507513-1210USA008661

PATIENT
  Sex: Female
  Weight: 43.54 kg

DRUGS (6)
  1. FOSAMAX [Suspect]
     Active Substance: ALENDRONATE SODIUM
     Indication: OSTEOPOROSIS
     Dosage: 70 MG, UNK
     Route: 048
     Dates: end: 20000522
  2. FOSAMAX [Suspect]
     Active Substance: ALENDRONATE SODIUM
     Dosage: 70 MG, QW
     Route: 048
     Dates: start: 20010608
  3. FOSAMAX [Suspect]
     Active Substance: ALENDRONATE SODIUM
     Dosage: 70 MG, QW
     Route: 048
     Dates: start: 20020301, end: 20071204
  4. CLOTRIMAZOLE. [Concomitant]
     Active Substance: CLOTRIMAZOLE
     Indication: ORAL DISCOMFORT
     Route: 065
  5. FOSAMAX [Suspect]
     Active Substance: ALENDRONATE SODIUM
     Dosage: 5 MG, UNK
     Route: 048
  6. ALENDRONATE SODIUM. [Suspect]
     Active Substance: ALENDRONATE SODIUM
     Indication: OSTEOPOROSIS
     Route: 048

REACTIONS (92)
  - Tibia fracture [Unknown]
  - Hip fracture [Unknown]
  - Hypercholesterolaemia [Unknown]
  - Injury [Unknown]
  - Nasal congestion [Not Recovered/Not Resolved]
  - Osteoarthritis [Unknown]
  - Macular degeneration [Unknown]
  - Radial nerve palsy [Recovered/Resolved]
  - Hip fracture [Unknown]
  - Osteomalacia [Unknown]
  - Osteoarthritis [Unknown]
  - Stress [Unknown]
  - Elbow deformity [Unknown]
  - Upper limb fracture [Unknown]
  - Interstitial lung disease [Unknown]
  - Acute pulmonary oedema [Unknown]
  - Osteoarthritis [Unknown]
  - Radius fracture [Unknown]
  - Depression [Unknown]
  - Laceration [Recovering/Resolving]
  - Oesophagitis [Unknown]
  - Open reduction of fracture [Unknown]
  - Hip surgery [Unknown]
  - Haemarthrosis [Unknown]
  - Ingrowing nail [Unknown]
  - Sinus pain [Unknown]
  - Anxiety [Not Recovered/Not Resolved]
  - Ulna fracture [Unknown]
  - Ulna fracture [Unknown]
  - Fibula fracture [Unknown]
  - Spinal deformity [Unknown]
  - Somatic symptom disorder [Not Recovered/Not Resolved]
  - Tricuspid valve incompetence [Unknown]
  - Paranasal sinus haematoma [Unknown]
  - Drug ineffective [Unknown]
  - Femur fracture [Not Recovered/Not Resolved]
  - Open reduction of fracture [Unknown]
  - Tibia fracture [Unknown]
  - Cataract [Unknown]
  - Incision site complication [Unknown]
  - Joint effusion [Unknown]
  - Glaucoma [Unknown]
  - Cardiac failure congestive [Unknown]
  - Musculoskeletal chest pain [Unknown]
  - Abdominal discomfort [Not Recovered/Not Resolved]
  - Hip arthroplasty [Unknown]
  - Humerus fracture [Unknown]
  - Humerus fracture [Unknown]
  - Stress fracture [Not Recovered/Not Resolved]
  - Diabetes mellitus [Unknown]
  - Ingrowing nail [Unknown]
  - Glucose tolerance impaired [Unknown]
  - Weight decreased [Unknown]
  - Hiatus hernia [Unknown]
  - Chest pain [Unknown]
  - Pleural effusion [Recovered/Resolved]
  - Osteoarthritis [Unknown]
  - Contusion [Unknown]
  - Cardiomegaly [Unknown]
  - Rotator cuff syndrome [Not Recovered/Not Resolved]
  - Cholelithiasis [Unknown]
  - Fall [Unknown]
  - Contusion [Unknown]
  - Traumatic haematoma [Unknown]
  - Gastrooesophageal reflux disease [Not Recovered/Not Resolved]
  - Death [Fatal]
  - Myocardial infarction [Unknown]
  - Femur fracture [Not Recovered/Not Resolved]
  - Vitamin D deficiency [Unknown]
  - Calcium deficiency [Unknown]
  - Lumbar vertebral fracture [Unknown]
  - Road traffic accident [Unknown]
  - Fall [Unknown]
  - Kyphoscoliosis [Unknown]
  - Constipation [Unknown]
  - Coronary artery bypass [Unknown]
  - Hypertension [Unknown]
  - Osteoarthritis [Unknown]
  - Bone loss [Unknown]
  - Thoracic vertebral fracture [Unknown]
  - Fall [Unknown]
  - Ulnar nerve palsy [Unknown]
  - Pleural effusion [Unknown]
  - Fall [Unknown]
  - Musculoskeletal chest pain [Unknown]
  - Low turnover osteopathy [Not Recovered/Not Resolved]
  - Humerus fracture [Unknown]
  - Femur fracture [Unknown]
  - Coronary artery disease [Unknown]
  - Fall [Unknown]
  - Atelectasis [Unknown]
  - Facial bones fracture [Unknown]

NARRATIVE: CASE EVENT DATE: 199410
